FAERS Safety Report 13863305 (Version 1)
Quarter: 2017Q3

REPORT INFORMATION
  Report Type: Spontaneous
  Country: AT (occurrence: AT)
  Receive Date: 20170814
  Receipt Date: 20170814
  Transmission Date: 20171127
  Serious: Yes (Death, Other)
  Sender: FDA-Public Use
  Company Number: AT-SUN PHARMACEUTICAL INDUSTRIES LTD-2015R1-95179

PATIENT
  Age: 51 Year
  Sex: Female

DRUGS (2)
  1. CAPECITABINE. [Interacting]
     Active Substance: CAPECITABINE
     Indication: CHEMOTHERAPY
     Dosage: UNK
     Route: 065
  2. FOLIC ACID. [Suspect]
     Active Substance: FOLIC ACID
     Indication: PRODUCT USED FOR UNKNOWN INDICATION
     Dosage: UNK
     Route: 065

REACTIONS (7)
  - Self-medication [Unknown]
  - Palmar-plantar erythrodysaesthesia syndrome [Unknown]
  - Bone marrow failure [Unknown]
  - Vomiting [Unknown]
  - Drug interaction [Unknown]
  - Septic shock [Fatal]
  - Diarrhoea [Unknown]
